FAERS Safety Report 7285737-1 (Version None)
Quarter: 2011Q1

REPORT INFORMATION
  Report Type: 
  Country: None (occurrence: None)
  Receive Date: 20110128
  Receipt Date: 20110118
  Transmission Date: 20110831
  Serious: Yes (Other)
  Sender: FDA-Public Use
  Company Number: 1000018211

PATIENT
  Age: 80 Year
  Sex: Male

DRUGS (4)
  1. COMBIVENT (IPRATROPIUM BROMIDE, ALBUTEROL SULFATE)(INHALANT)(IPRATROPI [Concomitant]
  2. WARFARIN (WARFARIN) [Suspect]
     Indication: ATRIAL FIBRILLATION
  3. SAVELLA [Suspect]
  4. NAMENDA [Concomitant]

REACTIONS (2)
  - DRUG INTERACTION [None]
  - INTERNATIONAL NORMALISED RATIO INCREASED [None]
